FAERS Safety Report 5875378-2 (Version None)
Quarter: 2008Q3

REPORT INFORMATION
  Report Type: 
  Country: None (occurrence: None)
  Receive Date: 20080904
  Receipt Date: 20080826
  Transmission Date: 20090109
  Serious: Yes (Other)
  Sender: FDA-Public Use
  Company Number: 2008AL009861

PATIENT
  Age: 71 Year
  Sex: Female
  Weight: 106.5953 kg

DRUGS (1)
  1. DIGOXIN [Suspect]
     Indication: HEART RATE IRREGULAR

REACTIONS (5)
  - ABASIA [None]
  - DIZZINESS [None]
  - EATING DISORDER [None]
  - MALAISE [None]
  - NAUSEA [None]
